FAERS Safety Report 18675457 (Version 1)
Quarter: 2020Q4

REPORT INFORMATION
  Report Type: Spontaneous
  Country: US (occurrence: US)
  Receive Date: 20201229
  Receipt Date: 20201229
  Transmission Date: 20210114
  Serious: No
  Sender: FDA-Public Use
  Company Number: US-GLAXOSMITHKLINE-US2020254259

PATIENT
  Age: 35 Year
  Sex: Female

DRUGS (2)
  1. ABREVA [Suspect]
     Active Substance: DOCOSANOL
     Indication: ORAL HERPES
     Dosage: UNK, 5 TIMES A DAY
     Dates: start: 20201218
  2. ABREVA [Concomitant]
     Active Substance: DOCOSANOL
     Indication: ORAL HERPES
     Dosage: UNK
     Dates: start: 2018

REACTIONS (3)
  - Condition aggravated [Unknown]
  - Oral herpes [Unknown]
  - Oral discomfort [Unknown]

NARRATIVE: CASE EVENT DATE: 20201218
